FAERS Safety Report 19410808 (Version 1)
Quarter: 2021Q2

REPORT INFORMATION
  Report Type: Spontaneous
  Country: US (occurrence: US)
  Receive Date: 20210614
  Receipt Date: 20210614
  Transmission Date: 20210717
  Serious: Yes (Other)
  Sender: FDA-Public Use
  Company Number: US-BAYER-2021-156538

PATIENT
  Age: 26 Year
  Sex: Female

DRUGS (2)
  1. MIRENA [Suspect]
     Active Substance: LEVONORGESTREL
     Indication: HEAVY MENSTRUAL BLEEDING
     Dosage: 20 ?G PER DAY CONTINUOUSLY
     Route: 015
     Dates: start: 20200701, end: 20210609
  2. MIRENA [Suspect]
     Active Substance: LEVONORGESTREL
     Indication: CONTRACEPTION

REACTIONS (3)
  - Intermenstrual bleeding [None]
  - Device dislocation [Recovered/Resolved]
  - Pelvic pain [None]
